FAERS Safety Report 24078226 (Version 4)
Quarter: 2024Q4

REPORT INFORMATION
  Report Type: Spontaneous
  Country: US (occurrence: US)
  Receive Date: 20240711
  Receipt Date: 20241113
  Transmission Date: 20250115
  Serious: Yes (Hospitalization, Other)
  Sender: JOHNSON AND JOHNSON
  Company Number: US-JNJFOC-20240720340

PATIENT
  Age: 82 Year
  Sex: Male

DRUGS (2)
  1. CARVYKTI [Suspect]
     Active Substance: CILTACABTAGENE AUTOLEUCEL
     Indication: Product used for unknown indication
     Route: 065
     Dates: start: 20231107
  2. CYCLOPHOSPHAMIDE [Concomitant]
     Active Substance: CYCLOPHOSPHAMIDE
     Indication: Renal impairment
     Route: 065

REACTIONS (17)
  - Intestinal ischaemia [Unknown]
  - Volvulus [Unknown]
  - Gastrointestinal inflammation [Not Recovered/Not Resolved]
  - Clostridium test positive [Not Recovered/Not Resolved]
  - Intestinal perforation [Unknown]
  - Diarrhoea [Unknown]
  - Electrolyte imbalance [Unknown]
  - Cytokine release syndrome [Unknown]
  - Disease progression [Unknown]
  - Colitis [Unknown]
  - Intestinal obstruction [Unknown]
  - Renal impairment [Unknown]
  - Cytopenia [Unknown]
  - Apoptosis [Unknown]
  - Gastrointestinal disorder [Unknown]
  - Duodenitis [Unknown]
  - Parvovirus infection [Unknown]
